FAERS Safety Report 5949242-4 (Version None)
Quarter: 2008Q4

REPORT INFORMATION
  Report Type: 
  Country: None (occurrence: None)
  Receive Date: 20081111
  Receipt Date: 20081103
  Transmission Date: 20090506
  Serious: Yes (Hospitalization)
  Sender: FDA-Public Use
  Company Number: CN-ALLERGAN-0813972US

PATIENT
  Sex: Female

DRUGS (2)
  1. BOTULINUM TOXIN TYPE A [Suspect]
     Indication: SKIN WRINKLING
     Dosage: 100 UNITS, SINGLE
     Route: 030
  2. BOTULINUM TOXIN TYPE A [Suspect]
     Dosage: 200 UNITS, SINGLE
     Route: 030

REACTIONS (8)
  - DIPLOPIA [None]
  - DYSPHAGIA [None]
  - EYELID PTOSIS [None]
  - MALAISE [None]
  - MUSCULAR WEAKNESS [None]
  - PARALYSIS [None]
  - QUADRIPARESIS [None]
  - RESPIRATORY FAILURE [None]
